FAERS Safety Report 9120554 (Version 1)
Quarter: 2013Q1

REPORT INFORMATION
  Report Type: Spontaneous
  Country: US (occurrence: US)
  Receive Date: 20130226
  Receipt Date: 20130226
  Transmission Date: 20140127
  Serious: Yes (Death)
  Sender: FDA-Public Use
  Company Number: US-ROCHE-1194084

PATIENT
  Age: 57 Year
  Sex: Male

DRUGS (14)
  1. DIAZEPAM [Suspect]
     Indication: PRODUCT USED FOR UNKNOWN INDICATION
     Route: 048
  2. DIAZEPAM [Suspect]
     Dosage: OVERDOSE
     Route: 048
  3. DILTIAZEM [Suspect]
     Indication: PRODUCT USED FOR UNKNOWN INDICATION
     Route: 048
  4. DILTIAZEM [Suspect]
     Dosage: OVERDOSE
     Route: 048
  5. COCAINE [Suspect]
     Indication: PRODUCT USED FOR UNKNOWN INDICATION
     Route: 048
  6. COCAINE [Suspect]
     Dosage: OVERDOSE
     Route: 048
  7. TRAMADOL [Suspect]
     Indication: PRODUCT USED FOR UNKNOWN INDICATION
     Route: 048
  8. TRAMADOL [Suspect]
     Dosage: OVERDOSE
     Route: 048
  9. CARVEDILOL [Suspect]
     Indication: PRODUCT USED FOR UNKNOWN INDICATION
     Route: 048
  10. CARVEDILOL [Suspect]
     Dosage: OVERDOSE
     Route: 048
  11. LISINOPRIL [Suspect]
     Indication: PRODUCT USED FOR UNKNOWN INDICATION
     Route: 048
  12. LISINOPRIL [Suspect]
     Dosage: OVERDOSE
     Route: 048
  13. AMIODARONE [Suspect]
     Indication: PRODUCT USED FOR UNKNOWN INDICATION
     Route: 048
  14. AMIODARONE [Suspect]
     Dosage: OVERDOSE
     Route: 048

REACTIONS (1)
  - Toxicity to various agents [Fatal]
